FAERS Safety Report 25821299 (Version 1)
Quarter: 2025Q3

REPORT INFORMATION
  Report Type: Spontaneous
  Country: US (occurrence: US)
  Receive Date: 20250919
  Receipt Date: 20250919
  Transmission Date: 20251021
  Serious: Yes (Hospitalization, Other)
  Sender: ASSERTIO THERAPEUTICS
  Company Number: US-ASSERTIO THERAPEUTICS, INC.-US-2025AST000445

PATIENT
  Age: 6 Day
  Sex: Male

DRUGS (6)
  1. CLOBAZAM [Suspect]
     Active Substance: CLOBAZAM
     Indication: Seizure
     Route: 065
  2. LACOSAMIDE [Suspect]
     Active Substance: LACOSAMIDE
     Indication: Seizure
     Route: 065
  3. KETAMINE [Suspect]
     Active Substance: KETAMINE
     Indication: Nervous system disorder prophylaxis
     Route: 065
  4. FOSPHENYTOIN [Concomitant]
     Active Substance: FOSPHENYTOIN
     Indication: Seizure
     Route: 065
  5. LEVETIRACETAM [Concomitant]
     Active Substance: LEVETIRACETAM
     Indication: Seizure
     Route: 065
  6. MIDAZOLAM [Concomitant]
     Active Substance: MIDAZOLAM
     Indication: Seizure
     Route: 065

REACTIONS (7)
  - Brain abscess [Unknown]
  - Haemorrhagic cerebral infarction [Unknown]
  - Intracranial pressure increased [Unknown]
  - Hydrocephalus [Unknown]
  - CNS ventriculitis [Unknown]
  - Off label use [Unknown]
  - Product administered to patient of inappropriate age [Unknown]
